FAERS Safety Report 26097107 (Version 1)
Quarter: 2025Q4

REPORT INFORMATION
  Report Type: Spontaneous
  Country: EU (occurrence: EU)
  Receive Date: 20251127
  Receipt Date: 20251127
  Transmission Date: 20260117
  Serious: Yes (Disabling)
  Sender: SAMSUNG BIOEPIS
  Company Number: None

PATIENT
  Age: 69 Year
  Sex: Female
  Weight: 91 kg

DRUGS (5)
  1. TRASTUZUMAB [Suspect]
     Active Substance: TRASTUZUMAB
     Indication: Neoplasm prophylaxis
     Dosage: INFUSION EVERY THIRD WEEK
     Dates: start: 20250414, end: 20250725
  2. LERCANIDIPINE HYDROCHLORIDE [Concomitant]
     Active Substance: LERCANIDIPINE HYDROCHLORIDE
     Indication: Product used for unknown indication
     Dosage: STRENGTH (LERCANIDIPINE HYDROCHLORIDE, ANHYDROUS) 20 MILLIGRAM, STRENGTH (LERCANIDIPINE) 18.8 MILLIG
  3. PANTOPRAZOLE SODIUM [Concomitant]
     Active Substance: PANTOPRAZOLE SODIUM
     Indication: Product used for unknown indication
     Dosage: STRENGTH (PANTOPRAZOLE SODIUM SESQUIHYDRATE) 45.11 MILLIGRAM, STRENGTH (PANTOPRAZOLE) 40 MILLIGRAM;
  4. ACETAMINOPHEN [Concomitant]
     Active Substance: ACETAMINOPHEN
     Indication: Product used for unknown indication
  5. PROPIOMAZINE [Concomitant]
     Active Substance: PROPIOMAZINE
     Indication: Product used for unknown indication
     Dosage: STRENGTH (PROPIOMAZINE) 25 MILLIGRAM, STRENGTH (PROPIOMAZINE MALEATE) 34 MILLIGRAM;

REACTIONS (3)
  - Dyspnoea [Not Recovered/Not Resolved]
  - Cardiac failure [Not Recovered/Not Resolved]
  - Product use in unapproved indication [Unknown]

NARRATIVE: CASE EVENT DATE: 20250725
